FAERS Safety Report 5011120-5 (Version None)
Quarter: 2006Q2

REPORT INFORMATION
  Report Type: 
  Country: None (occurrence: None)
  Receive Date: 20060523
  Receipt Date: 20060523
  Transmission Date: 20061013
  Serious: Yes (Hospitalization)
  Sender: FDA-Public Use
  Company Number: None

PATIENT
  Age: 77 Year
  Sex: Female
  Weight: 44 kg

DRUGS (2)
  1. WARFARIN SODIUM [Suspect]
     Indication: THROMBOSIS
  2. HEPARIN [Suspect]

REACTIONS (4)
  - ANAEMIA [None]
  - ANGIONEUROTIC OEDEMA [None]
  - DYSPNOEA [None]
  - RETROPERITONEAL HAEMORRHAGE [None]
